FAERS Safety Report 5520159-2 (Version None)
Quarter: 2007Q4

REPORT INFORMATION
  Report Type: 
  Country: None (occurrence: None)
  Receive Date: 20071116
  Receipt Date: 20071023
  Transmission Date: 20080405
  Serious: No
  Sender: FDA-Public Use
  Company Number: US-BOEHRINGER INGELHEIM PHARMACEUTICALS, INC.-2007-BP-21701BP

PATIENT
  Sex: Male
  Weight: 80 kg

DRUGS (10)
  1. MIRAPEX [Suspect]
     Indication: RESTLESS LEGS SYNDROME
     Dates: end: 20070914
  2. ADVAIR DISKUS 100/50 [Concomitant]
  3. FLONASE [Concomitant]
  4. AVODART [Concomitant]
  5. VERAPAMIL [Concomitant]
  6. ZOCOR [Concomitant]
  7. REQUIP [Concomitant]
  8. FISH OIL [Concomitant]
  9. FIBERCON [Concomitant]
  10. ASPIRIN [Concomitant]

REACTIONS (1)
  - GAMBLING [None]
